FAERS Safety Report 9457869 (Version 1)
Quarter: 2013Q3

REPORT INFORMATION
  Report Type: Spontaneous
  Country: US (occurrence: None)
  Receive Date: 20130809
  Receipt Date: 20130809
  Transmission Date: 20140515
  Serious: Yes (Other)
  Sender: FDA-Public Use
  Company Number: JPI-P-034141

PATIENT
  Age: 57 Year
  Sex: Female

DRUGS (1)
  1. XYREM (500 MILLIGRAM/MILLILITERS, SOLUTION) (SODIUM OXYBATE) [Suspect]
     Indication: INSOMNIA
     Dosage: 3 GM 2 IN 1 D
     Route: 048
     Dates: start: 20120731, end: 20120820

REACTIONS (2)
  - Dehydration [None]
  - Blood potassium increased [None]
